FAERS Safety Report 21311829 (Version 1)
Quarter: 2022Q3

REPORT INFORMATION
  Report Type: Spontaneous
  Country: US (occurrence: None)
  Receive Date: 20220909
  Receipt Date: 20220909
  Transmission Date: 20221027
  Serious: No
  Sender: FDA-Public Use
  Company Number: US-ARIS GLOBAL-202203-0518

PATIENT
  Sex: Female

DRUGS (14)
  1. OXERVATE [Suspect]
     Active Substance: CENEGERMIN-BKBJ
     Indication: Neurotrophic keratopathy
     Route: 047
     Dates: start: 20220209
  2. MOXIFLOXACIN [Concomitant]
     Active Substance: MOXIFLOXACIN
  3. ALPHAGAN P [Concomitant]
     Active Substance: BRIMONIDINE TARTRATE
  4. LOTEMAX [Concomitant]
     Active Substance: LOTEPREDNOL ETABONATE
     Dosage: DROPS GEL
  5. ANTACID [Concomitant]
     Active Substance: ALUMINUM HYDROXIDE\CALCIUM CARBONATE\DIMETHICONE\MAGNESIUM HYDROXIDE
     Dosage: 168 (420) MG
  6. PROBIOTIC 10B CELL [Concomitant]
  7. DICLOFENAC [Concomitant]
     Active Substance: DICLOFENAC
  8. MOTRIN IB [Concomitant]
     Active Substance: IBUPROFEN
  9. FAMOTIDINE [Concomitant]
     Active Substance: FAMOTIDINE
  10. ATIVAN [Concomitant]
     Active Substance: LORAZEPAM
  11. ERYTHROMYCIN [Concomitant]
     Active Substance: ERYTHROMYCIN
  12. REFRESH CLASSIC [Concomitant]
     Active Substance: POLYVINYL ALCOHOL\POVIDONE
  13. TIMOLOL [Concomitant]
     Active Substance: TIMOLOL
  14. REOMIDINA [Concomitant]

REACTIONS (2)
  - Dry eye [Unknown]
  - Eye irritation [Unknown]
